FAERS Safety Report 4674019-X (Version None)
Quarter: 2005Q2

REPORT INFORMATION
  Report Type: 
  Country: None (occurrence: None)
  Receive Date: 20050525
  Receipt Date: 20050511
  Transmission Date: 20051028
  Serious: Yes (Disabling)
  Sender: FDA-Public Use
  Company Number: 2005018620

PATIENT
  Age: 70 Year
  Sex: Female
  Weight: 67 kg

DRUGS (5)
  1. SORTIS (ATORVASTATIN) [Suspect]
     Indication: HYPERCHOLESTEROLAEMIA
     Dosage: 5 MG (5 MG, 1 IN 1 D), ORAL
     Route: 048
     Dates: start: 20040227, end: 20040624
  2. OMEPRAZOLE [Concomitant]
  3. VITAMIN E [Concomitant]
  4. MAGNESIUM (MAGNESIUM) [Concomitant]
  5. HOMEOPATHIC PREPARATION (HOMEOPATIC PREPARATION) [Concomitant]

REACTIONS (8)
  - BLOOD ALBUMIN DECREASED [None]
  - DRUG INEFFECTIVE [None]
  - INFECTION [None]
  - PHARMACEUTICAL PRODUCT COMPLAINT [None]
  - POLYARTHRITIS [None]
  - POLYMYALGIA [None]
  - POLYMYALGIA RHEUMATICA [None]
  - WHITE BLOOD CELL COUNT INCREASED [None]
